FAERS Safety Report 13199515 (Version 2)
Quarter: 2017Q2

REPORT INFORMATION
  Report Type: Report from Study
  Country: None (occurrence: PR)
  Receive Date: 20170208
  Receipt Date: 20170405
  Transmission Date: 20170830
  Serious: Yes (Other)
  Sender: FDA-Public Use
  Company Number: PR-ABBVIE-17P-131-1862081-00

PATIENT
  Sex: Female

DRUGS (2)
  1. LUPRON DEPOT [Suspect]
     Active Substance: LEUPROLIDE ACETATE
     Indication: ENDOMETRIOSIS
     Route: 050
     Dates: start: 2013, end: 2013
  2. RELAFEN [Concomitant]
     Active Substance: NABUMETONE
     Indication: SLEEP DISORDER THERAPY
     Route: 048

REACTIONS (15)
  - Depression [Unknown]
  - Abdominal pain [Not Recovered/Not Resolved]
  - Menstruation irregular [Recovered/Resolved]
  - Vitamin D deficiency [Unknown]
  - Spinal disorder [Not Recovered/Not Resolved]
  - Haemoglobin decreased [Not Recovered/Not Resolved]
  - Intervertebral disc disorder [Not Recovered/Not Resolved]
  - Uterine disorder [Unknown]
  - Ovarian cyst [Unknown]
  - Anxiety [Unknown]
  - Vaginal haemorrhage [Not Recovered/Not Resolved]
  - Arthropathy [Not Recovered/Not Resolved]
  - Pelvic pain [Not Recovered/Not Resolved]
  - Ovarian cyst [Not Recovered/Not Resolved]
  - Panic attack [Unknown]

NARRATIVE: CASE EVENT DATE: 2013
